FAERS Safety Report 6341977-7 (Version None)
Quarter: 2009Q3

REPORT INFORMATION
  Report Type: 
  Country: None (occurrence: None)
  Receive Date: 20090904
  Receipt Date: 20090827
  Transmission Date: 20100115
  Serious: Yes (Hospitalization)
  Sender: FDA-Public Use
  Company Number: US-ABBOTT-09P-163-0594076-00

PATIENT
  Sex: Female
  Weight: 57.204 kg

DRUGS (4)
  1. HUMIRA [Suspect]
     Indication: CROHN'S DISEASE
     Dosage: ONCE- 2 WEEKS AFTER INTIAL DOSE
  2. HUMIRA [Suspect]
     Dosage: ONCE
  3. HUMIRA [Suspect]
     Dates: end: 20090701
  4. PREDNISONE TAB [Concomitant]
     Indication: CROHN'S DISEASE

REACTIONS (6)
  - ANTIPHOSPHOLIPID ANTIBODIES POSITIVE [None]
  - BACK PAIN [None]
  - BLOOD CALCIUM DECREASED [None]
  - BLOOD MAGNESIUM DECREASED [None]
  - BLOOD POTASSIUM DECREASED [None]
  - THROMBOSIS [None]
